FAERS Safety Report 18765343 (Version 1)
Quarter: 2021Q1

REPORT INFORMATION
  Report Type: Report from Study
  Country: None (occurrence: IL)
  Receive Date: 20210121
  Receipt Date: 20210121
  Transmission Date: 20210419
  Serious: Yes (Death)
  Sender: FDA-Public Use
  Company Number: IL-ABBVIE-21K-082-3736684-00

PATIENT
  Sex: Male

DRUGS (3)
  1. DUODOPA [Suspect]
     Active Substance: CARBIDOPA\LEVODOPA
     Dosage: MD(ML) 15.0; CD (ML/H) 3.9; ED (ML) 0.3; THERAPY DURATION (HRS) REMAINS AT 16
     Route: 050
  2. DUODOPA [Suspect]
     Active Substance: CARBIDOPA\LEVODOPA
     Dosage: MD (ML) 15.0; CD (ML/H) 3.6; ED (ML) 0.3; THERAPY DURATION (HRS)REMAINS AT 16
     Route: 050
  3. DUODOPA [Suspect]
     Active Substance: CARBIDOPA\LEVODOPA
     Indication: PARKINSON^S DISEASE
     Route: 050
     Dates: start: 20180130

REACTIONS (1)
  - Coronavirus test positive [Fatal]
